FAERS Safety Report 6258375-7 (Version None)
Quarter: 2009Q3

REPORT INFORMATION
  Report Type: 
  Country: None (occurrence: None)
  Receive Date: 20090702
  Receipt Date: 20090702
  Transmission Date: 20100115
  Serious: Yes (Life-Threatening, Hospitalization)
  Sender: FDA-Public Use
  Company Number: None

PATIENT
  Age: 32 Year
  Sex: Female
  Weight: 73.0291 kg

DRUGS (2)
  1. YAZ [Suspect]
     Indication: ACNE
     Dosage: 1 TABLET DAILY PO
     Route: 048
     Dates: start: 20090401, end: 20090619
  2. YAZ [Suspect]
     Indication: MENSTRUAL DISORDER
     Dosage: 1 TABLET DAILY PO
     Route: 048
     Dates: start: 20090401, end: 20090619

REACTIONS (4)
  - DEEP VEIN THROMBOSIS [None]
  - JOINT SWELLING [None]
  - MUSCLE SPASMS [None]
  - PULMONARY EMBOLISM [None]
